FAERS Safety Report 9323737 (Version 2)
Quarter: 2013Q2

REPORT INFORMATION
  Report Type: Spontaneous
  Country: US (occurrence: US)
  Receive Date: 20130603
  Receipt Date: 20130620
  Transmission Date: 20140414
  Serious: Yes (Other)
  Sender: FDA-Public Use
  Company Number: US-PFIZER INC-2013166508

PATIENT
  Age: 52 Year
  Sex: Female
  Weight: 90.7 kg

DRUGS (8)
  1. LYRICA [Suspect]
     Dosage: 2 CAPSULES OF 75MG IN MORNING, 1 CAPSULE OF 75MG IN AFTERNOON AND 2 CAPSULES OF 75 MG IN EVENING
     Route: 048
     Dates: end: 201305
  2. METOPROLOL [Concomitant]
     Indication: HYPERTENSION
     Dosage: UNK, 2X/DAY
  3. METOPROLOL [Concomitant]
     Indication: CARDIAC DISORDER
  4. TRAMADOL [Concomitant]
     Indication: PAIN
     Dosage: 50 MG, UNK
  5. NEXIUM [Concomitant]
     Dosage: UNK
  6. CYMBALTA [Concomitant]
     Dosage: UNK
  7. ZOLPIDEM [Concomitant]
     Dosage: 10 MG, UNK
  8. NEURONTIN [Concomitant]
     Dosage: UNK

REACTIONS (6)
  - Blood potassium increased [Unknown]
  - Blood magnesium decreased [Unknown]
  - Drug withdrawal syndrome [Unknown]
  - Panic reaction [Unknown]
  - Diarrhoea [Unknown]
  - Hyperhidrosis [Unknown]
